FAERS Safety Report 7359401-4 (Version None)
Quarter: 2011Q1

REPORT INFORMATION
  Report Type: 
  Country: None (occurrence: None)
  Receive Date: 20110310
  Receipt Date: 20110309
  Transmission Date: 20110831
  Serious: Yes (Death)
  Sender: FDA-Public Use
  Company Number: GRT 2010-16333

PATIENT
  Age: 76 Year
  Sex: Female
  Weight: 57 kg

DRUGS (9)
  1. BUPRENORPHINE TRANSDERMAL PATCH [Concomitant]
  2. ASCORBIC ACID [Concomitant]
  3. ACETYLSALICYLIC ACID [Concomitant]
  4. LACTULOSE [Concomitant]
  5. ALLOPURINOL [Concomitant]
  6. RAMIPRIL [Concomitant]
  7. LIDODERM [Suspect]
     Dates: start: 20090716, end: 20100801
  8. FUROSEMIDE [Concomitant]
  9. LETROZOLE [Concomitant]

REACTIONS (6)
  - BREAST CANCER [None]
  - GENERAL PHYSICAL HEALTH DETERIORATION [None]
  - PATHOLOGICAL FRACTURE [None]
  - NEOPLASM MALIGNANT [None]
  - SPINAL FRACTURE [None]
  - LEUKAEMIA [None]
